FAERS Safety Report 10924849 (Version 1)
Quarter: 2015Q1

REPORT INFORMATION
  Report Type: Spontaneous
  Country: US (occurrence: None)
  Receive Date: 20150316
  Receipt Date: 20150316
  Transmission Date: 20150721
  Serious: No
  Sender: FDA-Public Use
  Company Number: None

PATIENT
  Age: 68 Year
  Sex: Female
  Weight: 85.28 kg

DRUGS (10)
  1. REMICADE [Suspect]
     Active Substance: INFLIXIMAB
     Indication: COLITIS ULCERATIVE
     Dosage: 400 MG EVERY 8 WEEKS  INTO A VEIN
     Dates: start: 20141126, end: 20150122
  2. LOVASTATIN. [Concomitant]
     Active Substance: LOVASTATIN
  3. DILTIAZEM [Concomitant]
     Active Substance: DILTIAZEM
  4. FUROSEMIDE TAB [Concomitant]
  5. APRISO [Concomitant]
     Active Substance: MESALAMINE
  6. POTASSIUM [Concomitant]
     Active Substance: POTASSIUM
  7. BISOPROL/HCTZ [Concomitant]
  8. CALCIUM D CITRATE [Concomitant]
  9. PROBIOTICS [Concomitant]
     Active Substance: PROBIOTICS NOS
  10. MULTIVITAMIN [Concomitant]
     Active Substance: VITAMINS

REACTIONS (2)
  - Eczema [None]
  - Psoriasis [None]

NARRATIVE: CASE EVENT DATE: 20141215
